FAERS Safety Report 17780805 (Version 1)
Quarter: 2020Q2

REPORT INFORMATION
  Report Type: Spontaneous
  Country: US (occurrence: US)
  Receive Date: 20200513
  Receipt Date: 20200513
  Transmission Date: 20200714
  Serious: Yes (Hospitalization)
  Sender: FDA-Public Use
  Company Number: None

PATIENT
  Age: 73 Year
  Sex: Male
  Weight: 70 kg

DRUGS (1)
  1. VANCOMYCIN (VANCOMYCIN 1.5GM/VIL INJ) [Suspect]
     Active Substance: VANCOMYCIN
     Indication: OSTEOMYELITIS
     Dates: start: 20190913, end: 20191016

REACTIONS (1)
  - Acute kidney injury [None]

NARRATIVE: CASE EVENT DATE: 20191016
